FAERS Safety Report 19467019 (Version 5)
Quarter: 2021Q4

REPORT INFORMATION
  Report Type: Report from Study
  Country: US (occurrence: US)
  Receive Date: 20210628
  Receipt Date: 20211126
  Transmission Date: 20220303
  Serious: Yes (Hospitalization, Other)
  Sender: FDA-Public Use
  Company Number: US-NOVARTISPH-NVSC2021US132415

PATIENT
  Sex: Female

DRUGS (2)
  1. ENTRESTO [Suspect]
     Active Substance: SACUBITRIL\VALSARTAN
     Indication: Product used for unknown indication
     Dosage: 49.51 MG/KG, BID
     Route: 048
  2. ENTRESTO [Suspect]
     Active Substance: SACUBITRIL\VALSARTAN
     Dosage: 49.51 MG/KG, BID
     Route: 048

REACTIONS (9)
  - Atrial fibrillation [Unknown]
  - Weight decreased [Unknown]
  - Malaise [Unknown]
  - Nasopharyngitis [Unknown]
  - Arthralgia [Unknown]
  - Gait disturbance [Unknown]
  - Sinusitis [Unknown]
  - Back pain [Unknown]
  - Product dose omission issue [Unknown]
